FAERS Safety Report 23042340 (Version 1)
Quarter: 2023Q4

REPORT INFORMATION
  Report Type: Spontaneous
  Country: IL (occurrence: IL)
  Receive Date: 20231008
  Receipt Date: 20231008
  Transmission Date: 20240110
  Serious: Yes (Other)
  Sender: FDA-Public Use
  Company Number: IL-STRIDES ARCOLAB LIMITED-2023SP015089

PATIENT
  Age: 13 Year
  Sex: Male

DRUGS (4)
  1. MYCOPHENOLATE MOFETIL [Suspect]
     Active Substance: MYCOPHENOLATE MOFETIL
     Indication: Immune thrombocytopenia
     Dosage: 600 MILLIGRAM/SQ. METER, DAILY
     Route: 048
  2. MYCOPHENOLATE MOFETIL [Suspect]
     Active Substance: MYCOPHENOLATE MOFETIL
     Dosage: UNK, (DOSE DECREASED)
     Route: 065
  3. HUMAN RHO(D) IMMUNE GLOBULIN [Concomitant]
     Active Substance: HUMAN RHO(D) IMMUNE GLOBULIN
     Indication: Immune thrombocytopenia
     Dosage: UNK
     Route: 065
  4. Immunoglobulin [Concomitant]
     Indication: Immune thrombocytopenia
     Dosage: UNK
     Route: 042

REACTIONS (2)
  - Renal impairment [Recovered/Resolved]
  - Off label use [Unknown]
